FAERS Safety Report 7905734-X (Version None)
Quarter: 2011Q4

REPORT INFORMATION
  Report Type: 
  Country: None (occurrence: None)
  Receive Date: 20111108
  Receipt Date: 20111025
  Transmission Date: 20120403
  Serious: Yes (Other)
  Sender: FDA-Public Use
  Company Number: JP-2011-11770

PATIENT
  Age: 81 Year
  Sex: Male
  Weight: 61 kg

DRUGS (5)
  1. LASIX [Concomitant]
  2. HEPARIN AND PREPARATIONS (HEPARIN AND PREPARATIONS) [Concomitant]
  3. SAMSCA [Suspect]
     Indication: CARDIAC FAILURE
     Dosage: 7.5 MG MILLIGRAM(S), BID, ORAL, 15 MG MILLIGRAM(S), QD, ORAL
     Route: 048
     Dates: start: 20111019, end: 20111019
  4. SAMSCA [Suspect]
     Indication: CARDIAC FAILURE
     Dosage: 7.5 MG MILLIGRAM(S), BID, ORAL, 15 MG MILLIGRAM(S), QD, ORAL
     Route: 048
     Dates: start: 20111018, end: 20111018
  5. DOPAMINE HYDROCHLORIDE [Concomitant]

REACTIONS (5)
  - HYPOVOLAEMIA [None]
  - DEPRESSED LEVEL OF CONSCIOUSNESS [None]
  - BLOOD UREA INCREASED [None]
  - BLOOD CREATINE INCREASED [None]
  - HYPERNATRAEMIA [None]
